FAERS Safety Report 10061575 (Version 2)
Quarter: 2014Q2

REPORT INFORMATION
  Report Type: Spontaneous
  Country: JP (occurrence: JP)
  Receive Date: 20140407
  Receipt Date: 20140602
  Transmission Date: 20141212
  Serious: Yes (Other)
  Sender: FDA-Public Use
  Company Number: JP-009507513-1404JPN003432

PATIENT
  Age: 64 Year
  Sex: Female

DRUGS (4)
  1. PEGINTRON [Suspect]
     Indication: AUTOIMMUNE HEPATITIS
     Dosage: 1.5 MICROGRAM, QW
     Route: 065
  2. REBETOL [Suspect]
     Indication: AUTOIMMUNE HEPATITIS
     Dosage: 400 MG, QD
     Route: 048
  3. TELAPREVIR [Suspect]
     Indication: HEPATITIS C
     Dosage: 1500 MG/DAY
     Route: 065
  4. CYCLOSPORINE [Concomitant]
     Dosage: DAILY DOSAGE-UNKNOWN
     Route: 065

REACTIONS (1)
  - Autoimmune hepatitis [Unknown]
